FAERS Safety Report 5383058-5 (Version None)
Quarter: 2007Q3

REPORT INFORMATION
  Report Type: 
  Country: None (occurrence: None)
  Receive Date: 20070705
  Receipt Date: 20070618
  Transmission Date: 20080115
  Serious: Yes (Hospitalization)
  Sender: FDA-Public Use
  Company Number: 8023977

PATIENT
  Age: 45 Year
  Sex: Male
  Weight: 94 kg

DRUGS (6)
  1. KEPPRA [Suspect]
     Indication: EPILEPSY
     Dosage: 2000 MG /D
     Dates: end: 20050101
  2. KEPPRA [Suspect]
     Indication: EPILEPSY
     Dosage: 1000  MG /D
     Dates: start: 20050301
  3. KEPPRA [Suspect]
     Indication: EPILEPSY
     Dosage: 2000 MG /D
  4. KEPPRA [Suspect]
     Indication: EPILEPSY
     Dosage: 1000 MG PO
     Route: 048
     Dates: start: 20060301
  5. TIMOX [Concomitant]
  6. VALPROATE SODIUM [Concomitant]

REACTIONS (14)
  - ANOSMIA [None]
  - ANXIETY [None]
  - DEPRESSION [None]
  - DISEASE RECURRENCE [None]
  - DISTURBANCE IN ATTENTION [None]
  - DYSGEUSIA [None]
  - GRAND MAL CONVULSION [None]
  - HEADACHE [None]
  - HYPOACUSIS [None]
  - MEMORY IMPAIRMENT [None]
  - MENTAL DISORDER [None]
  - SUICIDAL IDEATION [None]
  - TACHYCARDIA [None]
  - TINNITUS [None]
